FAERS Safety Report 5634389-2 (Version None)
Quarter: 2008Q1

REPORT INFORMATION
  Report Type: 
  Country: None (occurrence: None)
  Receive Date: 20080222
  Receipt Date: 20080215
  Transmission Date: 20080703
  Serious: Yes (Other)
  Sender: FDA-Public Use
  Company Number: GB-JNJFOC-20080103931

PATIENT
  Sex: Female
  Weight: 57.15 kg

DRUGS (2)
  1. RISPERDAL CONSTA [Suspect]
     Indication: PSYCHOTIC DISORDER
     Route: 030
  2. RISPERDAL CONSTA [Suspect]
     Indication: AGITATION
     Route: 030

REACTIONS (4)
  - AGITATION [None]
  - ERYTHEMA [None]
  - FACE OEDEMA [None]
  - RESTLESSNESS [None]
